FAERS Safety Report 4986957-9 (Version None)
Quarter: 2006Q2

REPORT INFORMATION
  Report Type: 
  Country: None (occurrence: None)
  Receive Date: 20060501
  Receipt Date: 20060309
  Transmission Date: 20061013
  Serious: Yes (Life-Threatening, Other)
  Sender: FDA-Public Use
  Company Number: US-BRISTOL-MYERS SQUIBB COMPANY-13310412

PATIENT
  Age: 55 Year
  Sex: Male

DRUGS (4)
  1. ERBITUX [Suspect]
     Indication: COLORECTAL CANCER
     Dosage: 8TH DOSE. THERAPY START DATE APPROS 8 WEEKS AGO.
     Route: 042
     Dates: start: 20060308, end: 20060308
  2. ERBITUX [Suspect]
     Indication: METASTASES TO LUNG
     Dosage: 8TH DOSE. THERAPY START DATE APPROS 8 WEEKS AGO.
     Route: 042
     Dates: start: 20060308, end: 20060308
  3. BENADRYL [Concomitant]
     Indication: PREMEDICATION
     Route: 042
     Dates: start: 20060308, end: 20060308
  4. METHADONE HCL [Concomitant]

REACTIONS (7)
  - CHILLS [None]
  - DYSPNOEA [None]
  - ERYTHEMA [None]
  - HEART RATE INCREASED [None]
  - HYPERTENSION [None]
  - OXYGEN SATURATION DECREASED [None]
  - PRURITUS [None]
